FAERS Safety Report 14080253 (Version 1)
Quarter: 2017Q4

REPORT INFORMATION
  Report Type: Spontaneous
  Country: US (occurrence: US)
  Receive Date: 20171012
  Receipt Date: 20171012
  Transmission Date: 20180321
  Serious: Yes (Other)
  Sender: FDA-Public Use
  Company Number: US-009507513-1710USA003178

PATIENT
  Age: 79 Year
  Sex: Male

DRUGS (8)
  1. JANUMET XR [Suspect]
     Active Substance: METFORMIN HYDROCHLORIDE\SITAGLIPTIN PHOSPHATE
     Indication: DIABETES MELLITUS
     Dosage: 100/1000 / 1 TABLET / ONCE A DAY
     Route: 048
  2. VITAMIN D [Concomitant]
     Active Substance: CHOLECALCIFEROL
  3. GLIPIZIDE. [Concomitant]
     Active Substance: GLIPIZIDE
  4. METFORMIN [Concomitant]
     Active Substance: METFORMIN HYDROCHLORIDE
  5. ZOCOR [Concomitant]
     Active Substance: SIMVASTATIN
     Route: 048
  6. PROVENTIL [Concomitant]
     Active Substance: ALBUTEROL
  7. ASPIRIN. [Concomitant]
     Active Substance: ASPIRIN
     Route: 048
  8. FLOVENT [Concomitant]
     Active Substance: FLUTICASONE PROPIONATE

REACTIONS (1)
  - Pancreatitis [Recovered/Resolved]
